FAERS Safety Report 8593583 (Version 2)
Quarter: 2013Q4

REPORT INFORMATION
  Report Type: Spontaneous
  Country: US (occurrence: US)
  Receive Date: 20120604
  Receipt Date: 20131125
  Transmission Date: 20140711
  Serious: Yes (Death, Hospitalization, Other)
  Sender: FDA-Public Use
  Company Number: US-ASTRAZENECA-2012SE35389

PATIENT
  Age: 1034 Month
  Sex: Female
  Weight: 63.5 kg

DRUGS (3)
  1. NEXIUM [Suspect]
     Indication: GASTRIC DISORDER
     Dosage: ONCE
     Route: 048
     Dates: start: 200711
  2. ALKA-SELTZER [Concomitant]
  3. ROLAIDS [Concomitant]

REACTIONS (12)
  - Gastrointestinal haemorrhage [Fatal]
  - Gastritis [Fatal]
  - Type 2 diabetes mellitus [Fatal]
  - Coronary artery disease [Unknown]
  - Hypertension [Unknown]
  - Neuropathy peripheral [Unknown]
  - Spinal fracture [Unknown]
  - Osteoporosis [Unknown]
  - Upper limb fracture [Unknown]
  - Abdominal pain [Unknown]
  - Multiple fractures [Unknown]
  - Vitamin D deficiency [Unknown]
